FAERS Safety Report 12185160 (Version 1)
Quarter: 2016Q1

REPORT INFORMATION
  Report Type: Spontaneous
  Country: CN (occurrence: CN)
  Receive Date: 20160316
  Receipt Date: 20160316
  Transmission Date: 20160526
  Serious: Yes (Hospitalization, Other)
  Sender: FDA-Public Use
  Company Number: CN-BAYER-2016-046796

PATIENT
  Age: 69 Year
  Sex: Male

DRUGS (2)
  1. DIOVAN [Suspect]
     Active Substance: VALSARTAN
     Dosage: LONG-TERM USE
  2. BAYASPIRIN [Suspect]
     Active Substance: ASPIRIN
     Dosage: LONG-TERM USE

REACTIONS (13)
  - Chest discomfort [None]
  - Pleural fibrosis [None]
  - Dizziness [None]
  - Gastrointestinal ulcer haemorrhage [None]
  - Melaena [Recovered/Resolved]
  - Enteritis [None]
  - Oedema peripheral [None]
  - Large intestine polyp [None]
  - Pleural disorder [None]
  - Atelectasis [None]
  - Pleural effusion [None]
  - Pleural adhesion [None]
  - Hypochromic anaemia [Recovered/Resolved]

NARRATIVE: CASE EVENT DATE: 201401
